FAERS Safety Report 7957615-3 (Version None)
Quarter: 2011Q4

REPORT INFORMATION
  Report Type: 
  Country: None (occurrence: None)
  Receive Date: 20111205
  Receipt Date: 20111121
  Transmission Date: 20120403
  Serious: Yes (Other)
  Sender: FDA-Public Use
  Company Number: PHHY2011US103221

PATIENT
  Age: 97 Year
  Sex: Female

DRUGS (4)
  1. AMLODIPINE [Concomitant]
  2. METFORMIN HCL [Concomitant]
  3. VALSARTAN [Suspect]
  4. ASPIRIN [Concomitant]

REACTIONS (14)
  - CARDIAC MURMUR [None]
  - HEART RATE DECREASED [None]
  - HYPERKALAEMIA [None]
  - SINUS ARREST [None]
  - CONDUCTION DISORDER [None]
  - DIZZINESS [None]
  - QRS AXIS ABNORMAL [None]
  - HYPOTENSION [None]
  - SYNCOPE [None]
  - RHYTHM IDIOVENTRICULAR [None]
  - BLOOD GLUCOSE INCREASED [None]
  - ELECTROLYTE IMBALANCE [None]
  - CREATININE RENAL CLEARANCE DECREASED [None]
  - GLOMERULAR FILTRATION RATE DECREASED [None]
